FAERS Safety Report 13569465 (Version 5)
Quarter: 2017Q3

REPORT INFORMATION
  Report Type: Spontaneous
  Country: KR (occurrence: KR)
  Receive Date: 20170522
  Receipt Date: 20170802
  Transmission Date: 20171127
  Serious: Yes (Hospitalization, Other)
  Sender: FDA-Public Use
  Company Number: KR-009507513-1705KOR009284

PATIENT
  Age: 60 Year
  Sex: Female
  Weight: 68.4 kg

DRUGS (52)
  1. MABTHERA [Concomitant]
     Active Substance: RITUXIMAB
     Dosage: 695 MG, ONCE; CYCLE 4
     Route: 042
     Dates: start: 20160707, end: 20160707
  2. ADRIAMYCIN [Concomitant]
     Active Substance: DOXORUBICIN HYDROCHLORIDE
     Dosage: 70 MG, ONCE; CYCLE 6
     Route: 042
     Dates: start: 20160823, end: 20160823
  3. SOLONDO [Concomitant]
     Active Substance: PREDNISOLONE
     Dosage: 100 MG, QD
     Route: 048
     Dates: start: 20160728, end: 20160801
  4. ALOXI [Concomitant]
     Active Substance: PALONOSETRON HYDROCHLORIDE
     Indication: PROPHYLAXIS OF NAUSEA AND VOMITING
     Dosage: 0.25 MG, ONCE
     Route: 042
     Dates: start: 20160523, end: 20160523
  5. TYLENOL EXTENDED RELIEF CAPLETS [Concomitant]
     Active Substance: ACETAMINOPHEN
     Dosage: 650 MG, ONCE
     Route: 048
     Dates: start: 20160728, end: 20160728
  6. MABTHERA [Concomitant]
     Active Substance: RITUXIMAB
     Dosage: 695 MG, ONCE; CYCLE 6
     Route: 042
     Dates: start: 20160823, end: 20160823
  7. ENDOXAN [Concomitant]
     Active Substance: CYCLOPHOSPHAMIDE
     Dosage: 1400 MG, ONCE; CYCLE 3
     Route: 042
     Dates: start: 20160616, end: 20160616
  8. ADRIAMYCIN [Concomitant]
     Active Substance: DOXORUBICIN HYDROCHLORIDE
     Dosage: 70 MG, ONCE; CYCLE 4
     Route: 042
     Dates: start: 20160707, end: 20160707
  9. EMEND (FOSAPREPITANT DIMEGLUMINE) [Suspect]
     Active Substance: FOSAPREPITANT DIMEGLUMINE
     Indication: PROPHYLAXIS OF NAUSEA AND VOMITING
     Dosage: 150 MG, ONCE
     Route: 042
     Dates: start: 20160523, end: 20160523
  10. EMEND (FOSAPREPITANT DIMEGLUMINE) [Suspect]
     Active Substance: FOSAPREPITANT DIMEGLUMINE
     Dosage: 150 MG, ONCE
     Route: 042
     Dates: start: 20160707, end: 20160707
  11. MABTHERA [Concomitant]
     Active Substance: RITUXIMAB
     Dosage: 695 MG, ONCE; CYCLE 5
     Route: 042
     Dates: start: 20160728, end: 20160728
  12. ENDOXAN [Concomitant]
     Active Substance: CYCLOPHOSPHAMIDE
     Indication: CHEMOTHERAPY
     Dosage: 1400 MG, ONCE; CYCLE 2
     Route: 042
     Dates: start: 20160523, end: 20160523
  13. ENDOXAN [Concomitant]
     Active Substance: CYCLOPHOSPHAMIDE
     Dosage: 1100 MG, ONCE; CYCLE 5
     Route: 042
     Dates: start: 20160728, end: 20160728
  14. VINCRISTINE SULFATE. [Concomitant]
     Active Substance: VINCRISTINE SULFATE
     Dosage: 2 MG, ONCE; CYCLE 5
     Route: 042
     Dates: start: 20160728, end: 20160728
  15. ALOXI [Concomitant]
     Active Substance: PALONOSETRON HYDROCHLORIDE
     Dosage: 0.25 MG, ONCE
     Route: 042
     Dates: start: 20160707, end: 20160707
  16. ALOXI [Concomitant]
     Active Substance: PALONOSETRON HYDROCHLORIDE
     Dosage: 0.25 MG, ONCE
     Route: 042
     Dates: start: 20160728, end: 20160728
  17. PENIRAMIN [Concomitant]
     Dosage: 4 MG, ONCE
     Route: 042
     Dates: start: 20160707, end: 20160707
  18. LYRICA [Concomitant]
     Active Substance: PREGABALIN
     Indication: PAIN
     Dosage: 75 MG, BID
     Route: 048
     Dates: start: 20160414
  19. LANSTON [Concomitant]
     Active Substance: LANSOPRAZOLE
     Indication: PROPHYLAXIS AGAINST GASTROINTESTINAL ULCER
     Dosage: 15 MG, QD
     Route: 048
     Dates: start: 20160407, end: 20160613
  20. MACPERAN [Concomitant]
     Active Substance: METOCLOPRAMIDE HYDROCHLORIDE
     Indication: PROPHYLAXIS OF NAUSEA AND VOMITING
     Dosage: 10 MG, ONCE
     Route: 042
     Dates: start: 20160624, end: 20160624
  21. MABTHERA [Concomitant]
     Active Substance: RITUXIMAB
     Dosage: 695 MG, ONCE; CYCLE 3
     Route: 042
     Dates: start: 20160616, end: 20160616
  22. ALOXI [Concomitant]
     Active Substance: PALONOSETRON HYDROCHLORIDE
     Dosage: 0.25 MG, ONCE
     Route: 042
     Dates: start: 20160616, end: 20160616
  23. PENIRAMIN [Concomitant]
     Dosage: 4 MG, ONCE
     Route: 042
     Dates: start: 20160728, end: 20160728
  24. JURNISTA [Concomitant]
     Active Substance: HYDROMORPHONE HYDROCHLORIDE
     Indication: PAIN
     Dosage: 8 MG, QD (STRENGTH: 8 MG)
     Route: 048
     Dates: start: 20160418, end: 20160613
  25. MABTHERA [Concomitant]
     Active Substance: RITUXIMAB
     Indication: CHEMOTHERAPY
     Dosage: 695 MG, ONCE; CYCLE 2
     Route: 042
     Dates: start: 20160523, end: 20160523
  26. VINCRISTINE SULFATE. [Concomitant]
     Active Substance: VINCRISTINE SULFATE
     Dosage: 2 MG, ONCE; CYCLE 3
     Route: 042
     Dates: start: 20160616, end: 20160616
  27. SOLONDO [Concomitant]
     Active Substance: PREDNISOLONE
     Dosage: 100 MG, QD
     Route: 048
     Dates: start: 20160707, end: 20160711
  28. SOLONDO [Concomitant]
     Active Substance: PREDNISOLONE
     Dosage: 100 MG, QD
     Route: 048
     Dates: start: 20160823, end: 20160827
  29. TYLENOL EXTENDED RELIEF CAPLETS [Concomitant]
     Active Substance: ACETAMINOPHEN
     Indication: PREMEDICATION
     Dosage: 650 MG, ONCE
     Route: 048
     Dates: start: 20160523, end: 20160523
  30. TYLENOL EXTENDED RELIEF CAPLETS [Concomitant]
     Active Substance: ACETAMINOPHEN
     Dosage: 650 MG, ONCE
     Route: 048
     Dates: start: 20160823, end: 20160823
  31. EMEND (FOSAPREPITANT DIMEGLUMINE) [Suspect]
     Active Substance: FOSAPREPITANT DIMEGLUMINE
     Dosage: 150 MG, ONCE
     Route: 042
     Dates: start: 20160616, end: 20160616
  32. ADRIAMYCIN [Concomitant]
     Active Substance: DOXORUBICIN HYDROCHLORIDE
     Dosage: 90 MG, ONCE; CYCLE 3
     Route: 042
     Dates: start: 20160616, end: 20160616
  33. VINCRISTINE SULFATE. [Concomitant]
     Active Substance: VINCRISTINE SULFATE
     Indication: CHEMOTHERAPY
     Dosage: 2 MG, ONCE; CYCLE 2
     Route: 042
     Dates: start: 20160523, end: 20160523
  34. PENIRAMIN [Concomitant]
     Dosage: 4 MG, ONCE
     Route: 042
     Dates: start: 20160616, end: 20160616
  35. TYLENOL EXTENDED RELIEF CAPLETS [Concomitant]
     Active Substance: ACETAMINOPHEN
     Dosage: 650 MG, ONCE
     Route: 048
     Dates: start: 20160707, end: 20160707
  36. XARELTO [Concomitant]
     Active Substance: RIVAROXABAN
     Indication: PULMONARY EMBOLISM
     Dosage: 20 MG, QD
     Route: 048
     Dates: start: 20160615
  37. EMEND (FOSAPREPITANT DIMEGLUMINE) [Suspect]
     Active Substance: FOSAPREPITANT DIMEGLUMINE
     Dosage: 150 MG, ONCE
     Route: 042
     Dates: start: 20160728, end: 20160728
  38. EMEND (FOSAPREPITANT DIMEGLUMINE) [Suspect]
     Active Substance: FOSAPREPITANT DIMEGLUMINE
     Dosage: 150 MG, ONCE
     Route: 042
     Dates: start: 20160823, end: 20160823
  39. ENDOXAN [Concomitant]
     Active Substance: CYCLOPHOSPHAMIDE
     Dosage: 1100 MG, ONCE; CYCLE 6
     Route: 042
     Dates: start: 20160823, end: 20160823
  40. ADRIAMYCIN [Concomitant]
     Active Substance: DOXORUBICIN HYDROCHLORIDE
     Indication: CHEMOTHERAPY
     Dosage: 90 MG, ONCE; CYCLE 2
     Route: 042
     Dates: start: 20160523, end: 20160523
  41. ADRIAMYCIN [Concomitant]
     Active Substance: DOXORUBICIN HYDROCHLORIDE
     Dosage: 70 MG, ONCE; CYCLE 5
     Route: 042
     Dates: start: 20160728, end: 20160728
  42. VINCRISTINE SULFATE. [Concomitant]
     Active Substance: VINCRISTINE SULFATE
     Dosage: 2 MG, ONCE; CYCLE 6
     Route: 042
     Dates: start: 20160823, end: 20160823
  43. ALOXI [Concomitant]
     Active Substance: PALONOSETRON HYDROCHLORIDE
     Dosage: 0.25 MG, ONCE
     Route: 042
     Dates: start: 20160823, end: 20160823
  44. PENIRAMIN [Concomitant]
     Dosage: 4 MG, ONCE
     Route: 042
     Dates: start: 20160823, end: 20160823
  45. SCD MAGNESIUM OXIDE [Concomitant]
     Indication: CONSTIPATION PROPHYLAXIS
     Dosage: 250 MG, TID
     Route: 048
     Dates: start: 20160423, end: 20160824
  46. ENDOXAN [Concomitant]
     Active Substance: CYCLOPHOSPHAMIDE
     Dosage: 1100 MG, ONCE; CYCLE 4
     Route: 042
     Dates: start: 20160707, end: 20160707
  47. VINCRISTINE SULFATE. [Concomitant]
     Active Substance: VINCRISTINE SULFATE
     Dosage: 2 MG, ONCE; CYCLE 4
     Route: 042
     Dates: start: 20160707, end: 20160707
  48. SOLONDO [Concomitant]
     Active Substance: PREDNISOLONE
     Indication: CHEMOTHERAPY
     Dosage: 100 MG, QD
     Route: 048
     Dates: start: 20160523, end: 20160527
  49. SOLONDO [Concomitant]
     Active Substance: PREDNISOLONE
     Dosage: 100 MG, QD
     Route: 048
     Dates: start: 20160616, end: 20160620
  50. PENIRAMIN [Concomitant]
     Indication: PREMEDICATION
     Dosage: 4 MG, ONCE
     Route: 042
     Dates: start: 20160523, end: 20160523
  51. TYLENOL EXTENDED RELIEF CAPLETS [Concomitant]
     Active Substance: ACETAMINOPHEN
     Dosage: 650 MG, ONCE
     Route: 048
     Dates: start: 20160616, end: 20160616
  52. JURNISTA [Concomitant]
     Active Substance: HYDROMORPHONE HYDROCHLORIDE
     Dosage: 4 MG, QD
     Route: 048
     Dates: start: 20160615

REACTIONS (2)
  - Pyrexia [Recovered/Resolved]
  - Neutropenia [Recovered/Resolved]

NARRATIVE: CASE EVENT DATE: 20160624
